FAERS Safety Report 8379373-3 (Version None)
Quarter: 2012Q1

REPORT INFORMATION
  Report Type: 
  Country: None (occurrence: None)
  Receive Date: 20120323
  Receipt Date: 20110316
  Transmission Date: 20120608
  Serious: Yes (Hospitalization)
  Sender: FDA-Public Use
  Company Number: 163-21880-11032063

PATIENT
  Age: 69 Year
  Sex: Female
  Weight: 68.4 kg

DRUGS (4)
  1. REVLIMID [Suspect]
     Indication: MULTIPLE MYELOMA
     Dosage: 25 MG, 1 IN 1 D, PO
     Route: 048
     Dates: start: 20101001
  2. ZOCOR (SIMVASTATIN) (UNKNOWN) [Concomitant]
  3. NEURONTIN [Concomitant]
  4. AMARYL (GLIMEPIRIDE) (UNKNOWN) [Concomitant]

REACTIONS (2)
  - OEDEMA PERIPHERAL [None]
  - THROMBOSIS [None]
